FAERS Safety Report 4344036-8 (Version None)
Quarter: 2004Q2

REPORT INFORMATION
  Report Type: 
  Country: None (occurrence: None)
  Receive Date: 20040419
  Receipt Date: 20040407
  Transmission Date: 20050107
  Serious: Yes (Disabling)
  Sender: FDA-Public Use
  Company Number: 200410245BNE

PATIENT
  Age: 75 Year
  Sex: Male

DRUGS (4)
  1. CIPROFLOXACIN [Suspect]
     Indication: PROSTATITIS
     Dosage: 250 MG, TOTAL DAILY, ORAL
     Route: 048
     Dates: start: 20040322, end: 20040324
  2. SIMVASTATIN [Concomitant]
  3. TRIMETHOPRIM [Concomitant]
  4. CEPHALEXIN [Concomitant]

REACTIONS (1)
  - POLYARTHRITIS [None]
